FAERS Safety Report 9144146 (Version 1)
Quarter: 2013Q1

REPORT INFORMATION
  Report Type: Spontaneous
  Country: BR (occurrence: BR)
  Receive Date: 20130306
  Receipt Date: 20130306
  Transmission Date: 20140127
  Serious: Yes (Other)
  Sender: FDA-Public Use
  Company Number: BR-ROCHE-1196969

PATIENT
  Age: 74 None
  Sex: Female

DRUGS (9)
  1. XOLAIR [Suspect]
     Indication: ASTHMA
     Route: 065
     Dates: start: 20110201
  2. FORASEQ [Suspect]
     Indication: ASTHMA
     Dosage: INHALATION 12/400 MCG AT A DOSE OF TWO CAPSULES EACH TREATMENT
     Route: 065
  3. FORASEQ [Suspect]
     Indication: BRONCHITIS
  4. DIOVAN HCT [Suspect]
     Indication: HYPERTENSION
     Dosage: 320/25 MG
     Route: 048
  5. PRELONE [Concomitant]
  6. OSTEONUTRI [Concomitant]
  7. DEPURA [Concomitant]
  8. SODIUM HYDROXIDE [Concomitant]
  9. BEROTEC [Concomitant]

REACTIONS (8)
  - Renal vein occlusion [Recovering/Resolving]
  - Dyspnoea [Recovering/Resolving]
  - Wheezing [Recovering/Resolving]
  - Asthma [Recovering/Resolving]
  - Hypotension [Recovering/Resolving]
  - Renal disorder [Recovering/Resolving]
  - Oropharyngeal pain [Recovering/Resolving]
  - Increased upper airway secretion [Recovering/Resolving]
